FAERS Safety Report 23968574 (Version 2)
Quarter: 2024Q3

REPORT INFORMATION
  Report Type: Spontaneous
  Country: US (occurrence: US)
  Receive Date: 20240612
  Receipt Date: 20240729
  Transmission Date: 20241017
  Serious: No
  Sender: CALLIDITAS THERAPEUTICS
  Company Number: US-Calliditas-2024CAL00922

PATIENT
  Age: 20 Year
  Sex: Female

DRUGS (1)
  1. TARPEYO [Suspect]
     Active Substance: BUDESONIDE
     Indication: Haematuria
     Route: 048
     Dates: start: 20240426

REACTIONS (5)
  - Off label use [Unknown]
  - Memory impairment [Unknown]
  - Irritability [Unknown]
  - Peripheral swelling [Unknown]
  - Skin discolouration [Unknown]
